FAERS Safety Report 8022529-X (Version None)
Quarter: 2012Q1

REPORT INFORMATION
  Report Type: 
  Country: None (occurrence: None)
  Receive Date: 20120104
  Receipt Date: 20120103
  Transmission Date: 20120608
  Serious: Yes (Hospitalization)
  Sender: FDA-Public Use
  Company Number: US-GLAXOSMITHKLINE-A0915641A

PATIENT
  Age: 48 Year
  Sex: Female

DRUGS (2)
  1. AVANDIA [Suspect]
     Indication: DIABETES MELLITUS
     Dosage: 8MG PER DAY
     Route: 048
     Dates: start: 20001027, end: 20070101
  2. AVANDAMET [Suspect]
     Indication: DIABETES MELLITUS
     Route: 048
     Dates: start: 20050930

REACTIONS (15)
  - STENT PLACEMENT [None]
  - CATHETERISATION CARDIAC [None]
  - ARRHYTHMIA [None]
  - ANGIOPLASTY [None]
  - PAIN [None]
  - MYOCARDIAL INFARCTION [None]
  - PULMONARY OEDEMA [None]
  - TRANSIENT ISCHAEMIC ATTACK [None]
  - ISCHAEMIC CARDIOMYOPATHY [None]
  - CORONARY ARTERY DISEASE [None]
  - CARDIAC FAILURE CONGESTIVE [None]
  - SYNCOPE [None]
  - ANGIOGRAM ABNORMAL [None]
  - CORONARY ARTERY BYPASS [None]
  - CARDIOMYOPATHY [None]
